FAERS Safety Report 5254889-7 (Version None)
Quarter: 2007Q1

REPORT INFORMATION
  Report Type: 
  Country: None (occurrence: None)
  Receive Date: 20070302
  Receipt Date: 20070302
  Transmission Date: 20070707
  Serious: Yes (Congenital Anomaly)
  Sender: FDA-Public Use
  Company Number: None

PATIENT
  Sex: Female
  Weight: 3.402 kg

DRUGS (2)
  1. ZOLOFT [Suspect]
     Indication: ANXIETY
     Dates: start: 20010101, end: 20070101
  2. ZOLOFT [Suspect]
     Indication: DEPRESSION
     Dates: start: 20010101, end: 20070101

REACTIONS (6)
  - CEREBRAL CYST [None]
  - CONGENITAL CENTRAL NERVOUS SYSTEM ANOMALY [None]
  - DRUG EXPOSURE DURING PREGNANCY [None]
  - FEEDING DISORDER NEONATAL [None]
  - POLYDACTYLY [None]
  - TREMOR [None]
